FAERS Safety Report 5028695-2 (Version None)
Quarter: 2006Q2

REPORT INFORMATION
  Report Type: 
  Country: None (occurrence: None)
  Receive Date: 20060619
  Receipt Date: 20060608
  Transmission Date: 20061013
  Serious: Yes (Other)
  Sender: FDA-Public Use
  Company Number: DE-JNJFOC-20060602240

PATIENT
  Age: 81 Year
  Sex: Male

DRUGS (1)
  1. LIPRINEL CAP [Suspect]
     Indication: URGE INCONTINENCE
     Route: 048

REACTIONS (2)
  - DEMENTIA [None]
  - SOMNOLENCE [None]
